FAERS Safety Report 9218833 (Version 1)
Quarter: 2013Q2

REPORT INFORMATION
  Report Type: Spontaneous
  Country: US (occurrence: None)
  Receive Date: 20130405
  Receipt Date: 20130405
  Transmission Date: 20140414
  Serious: Yes (Hospitalization)
  Sender: FDA-Public Use
  Company Number: None

PATIENT
  Age: 9 Year
  Sex: Male
  Weight: 25.9 kg

DRUGS (12)
  1. VALPROIC ACID [Suspect]
     Indication: EPILEPSY
     Dosage: ON INCREASED DOSE
     Route: 048
  2. CALMOSEPTINE [Concomitant]
  3. DESITIN [Concomitant]
  4. IBUPROFEN [Concomitant]
  5. KEPPRA [Concomitant]
  6. LACTOBACILLUS [Concomitant]
  7. MELATONIN [Concomitant]
  8. MILK OF MAG [Concomitant]
  9. BACTRIM [Concomitant]
  10. APAP [Concomitant]
  11. VIGAMOX [Concomitant]
  12. XOPENEX [Concomitant]

REACTIONS (6)
  - Pancreatitis [None]
  - Respiratory distress [None]
  - Abdominal pain [None]
  - Abdominal distension [None]
  - Anuria [None]
  - Oxygen saturation decreased [None]
